FAERS Safety Report 22521671 (Version 1)
Quarter: 2023Q2

REPORT INFORMATION
  Report Type: Spontaneous
  Country: US (occurrence: US)
  Receive Date: 20230605
  Receipt Date: 20230605
  Transmission Date: 20230722
  Serious: Yes (Other)
  Sender: FDA-Public Use
  Company Number: US-TEVA-2023-US-2893183

PATIENT
  Age: 75 Year
  Sex: Female

DRUGS (9)
  1. PROVIGIL [Interacting]
     Active Substance: MODAFINIL
     Indication: Narcolepsy
     Route: 065
     Dates: start: 2002
  2. PROVIGIL [Interacting]
     Active Substance: MODAFINIL
     Route: 065
     Dates: start: 2007
  3. OZEMPIC [Interacting]
     Active Substance: SEMAGLUTIDE
     Indication: Product used for unknown indication
     Route: 065
     Dates: start: 202303
  4. METFORMIN [Concomitant]
     Active Substance: METFORMIN HYDROCHLORIDE
     Indication: Diabetes mellitus
     Route: 065
  5. ROSUVASTATIN [Concomitant]
     Active Substance: ROSUVASTATIN
     Indication: Product used for unknown indication
     Route: 065
  6. HYDROCHLOROTHIAZIDE [Concomitant]
     Active Substance: HYDROCHLOROTHIAZIDE
     Indication: Polyuria
     Route: 065
  7. Latus [Concomitant]
     Indication: Product used for unknown indication
     Dosage: 32 UNITS EVERY NIGHT
     Route: 065
  8. Women^s Multi Vitamin [Concomitant]
     Indication: Product used for unknown indication
     Route: 065
  9. VITAMIN B12 [Concomitant]
     Active Substance: CYANOCOBALAMIN
     Indication: Product used for unknown indication
     Dosage: EVERY OTHER DAY
     Route: 065

REACTIONS (7)
  - Sudden onset of sleep [Unknown]
  - Drug ineffective [Unknown]
  - Fatigue [Unknown]
  - Memory impairment [Unknown]
  - Weight decreased [Unknown]
  - Paranoia [Unknown]
  - Drug interaction [Unknown]

NARRATIVE: CASE EVENT DATE: 20230101
